FAERS Safety Report 7811435-9 (Version None)
Quarter: 2011Q4

REPORT INFORMATION
  Report Type: 
  Country: None (occurrence: None)
  Receive Date: 20111013
  Receipt Date: 20111011
  Transmission Date: 20120403
  Serious: Yes (Death)
  Sender: FDA-Public Use
  Company Number: JP-PFIZER INC-2011242818

PATIENT
  Age: 80 Year
  Sex: Female

DRUGS (1)
  1. CELECOXIB [Suspect]
     Indication: BACK PAIN
     Dosage: 200 MG, DAILY
     Route: 048

REACTIONS (2)
  - CEREBRAL INFARCTION [None]
  - CARDIAC FAILURE [None]
